FAERS Safety Report 10963593 (Version 1)
Quarter: 2015Q1

REPORT INFORMATION
  Report Type: Spontaneous
  Country: RU (occurrence: RU)
  Receive Date: 20150328
  Receipt Date: 20150328
  Transmission Date: 20150721
  Serious: Yes (Hospitalization)
  Sender: FDA-Public Use
  Company Number: RU-JNJFOC-20150313037

PATIENT
  Age: 9 Year
  Sex: Female

DRUGS (2)
  1. TYZINE [Suspect]
     Active Substance: TETRAHYDROZOLINE HYDROCHLORIDE
     Indication: RESPIRATORY DISORDER
     Dosage: 0.1%, SEVERAL SPRAYING 2-3 TIMES A DAY
     Route: 045
  2. VIBROCIL(R) [Suspect]
     Active Substance: DIMETHINDENE MALEATE\PHENYLEPHRINE HYDROCHLORIDE
     Indication: PRODUCT USED FOR UNKNOWN INDICATION
     Dosage: ONE TIME
     Route: 065

REACTIONS (7)
  - Counterfeit drug administered [Unknown]
  - Product quality issue [None]
  - Poisoning [None]
  - Vasospasm [Recovered/Resolved]
  - Pallor [Recovered/Resolved]
  - Tachycardia [Recovered/Resolved]
  - Body temperature decreased [None]
